FAERS Safety Report 23159858 (Version 2)
Quarter: 2023Q4

REPORT INFORMATION
  Report Type: Report from Study
  Country: MX (occurrence: MX)
  Receive Date: 20231108
  Receipt Date: 20231120
  Transmission Date: 20240110
  Serious: Yes (Other)
  Sender: FDA-Public Use
  Company Number: MX-002147023-NVSC2023MX238315

PATIENT
  Sex: Male
  Weight: 90 kg

DRUGS (7)
  1. GLIVEC [Suspect]
     Active Substance: IMATINIB MESYLATE
     Indication: Chronic myeloid leukaemia
     Dosage: 3 DOSAGE FORM, QD (3 OF 100MG)
     Route: 048
     Dates: start: 201807, end: 202311
  2. VITAMIN B COMPLEX [Concomitant]
     Active Substance: CYANOCOBALAMIN\DEXPANTHENOL\NIACINAMIDE\PYRIDOXINE HYDROCHLORIDE\RIBOFLAVIN 5^-PHOSPHATE SODIUM\THIA
     Indication: Hypovitaminosis
     Dosage: 1 DOSAGE FORM, Q24H (SEVERAL YEARS AGO, UNKNOWN EXACT DATE)
     Route: 048
  3. ACETAMINOPHEN [Concomitant]
     Active Substance: ACETAMINOPHEN
     Indication: Diabetic neuropathy
     Dosage: 1 DOSAGE FORM, PRN (SEVERAL YEARS AGO, UNKNOWN EXACT DATE)
     Route: 048
  4. ALPRAZOLAM [Concomitant]
     Active Substance: ALPRAZOLAM
     Indication: Sleep disorder
     Dosage: 0.25 MG, QD (AT NIGHT) (STARTED MORE THAN 4 MORE YEARS AGO)
     Route: 048
  5. PANTOPRAZOLE [Concomitant]
     Active Substance: PANTOPRAZOLE
     Indication: Abdominal discomfort
     Dosage: 1 DOSAGE FORM, Q24H (SEVERAL YEARS AGO, UNKNOWN EXACT DATE)
     Route: 048
  6. LOSARTAN [Concomitant]
     Active Substance: LOSARTAN
     Indication: Hypertension
     Dosage: 1 DOSAGE FORM, BID (1 OF 50 MG/ IN THE MORNING AND AFTERNOON) (5 YEARS AGO, UNKNOWN EXACT DATE)
     Route: 048
  7. DAPAGLIFLOZIN [Concomitant]
     Active Substance: DAPAGLIFLOZIN
     Indication: Diabetes mellitus
     Dosage: 1 DOSAGE FORM, Q24H (UNKNOWN EXACT DATE)
     Route: 048
     Dates: start: 2022

REACTIONS (10)
  - Diabetes mellitus [Unknown]
  - Blindness [Recovered/Resolved with Sequelae]
  - Retinal detachment [Recovered/Resolved with Sequelae]
  - Glaucoma [Not Recovered/Not Resolved]
  - Arrhythmia [Not Recovered/Not Resolved]
  - Cardiovascular disorder [Not Recovered/Not Resolved]
  - Foreign body sensation in eyes [Not Recovered/Not Resolved]
  - Depression [Unknown]
  - Skin ulcer [Not Recovered/Not Resolved]
  - Drug resistance [Unknown]

NARRATIVE: CASE EVENT DATE: 20200101
